FAERS Safety Report 16056637 (Version 1)
Quarter: 2019Q2

REPORT INFORMATION
  Report Type: Spontaneous
  Country: IN (occurrence: IN)
  Receive Date: 20190309
  Receipt Date: 20190309
  Transmission Date: 20190711
  Serious: Yes (Other)
  Sender: FDA-Public Use
  Company Number: None

PATIENT
  Age: 26 Year
  Sex: Female
  Weight: 57 kg

DRUGS (1)
  1. FOLYDOL- M [Suspect]
     Active Substance: FOLIC ACID\METHYLCOBALAMIN\PYRIDOXINE
     Indication: INFERTILITY
     Dosage: ?          QUANTITY:1 TABLET(S);?
     Route: 048
     Dates: start: 20190124, end: 20190309

REACTIONS (3)
  - Abdominal pain upper [None]
  - Product physical issue [None]
  - Discomfort [None]

NARRATIVE: CASE EVENT DATE: 20190205
